FAERS Safety Report 6791735-4 (Version None)
Quarter: 2010Q2

REPORT INFORMATION
  Report Type: 
  Country: None (occurrence: None)
  Receive Date: 20100624
  Receipt Date: 20080709
  Transmission Date: 20101027
  Serious: No
  Sender: FDA-Public Use
  Company Number: US-PFIZER INC-2008058681

PATIENT
  Sex: Female

DRUGS (2)
  1. DIFLUCAN [Suspect]
  2. TETRACYCLINE [Suspect]

REACTIONS (2)
  - HEPATIC ENZYME INCREASED [None]
  - STAPHYLOCOCCAL INFECTION [None]
